FAERS Safety Report 11201496 (Version 1)
Quarter: 2015Q2

REPORT INFORMATION
  Report Type: Spontaneous
  Country: US (occurrence: None)
  Receive Date: 20150617
  Receipt Date: 20150617
  Transmission Date: 20150821
  Serious: Yes (Other)
  Sender: FDA-Public Use
  Company Number: None

PATIENT
  Age: 50 Year
  Sex: Female

DRUGS (1)
  1. VENLAFAXINE [Suspect]
     Active Substance: VENLAFAXINE HYDROCHLORIDE
     Route: 048
     Dates: start: 20110105, end: 20110214

REACTIONS (4)
  - Hyperhidrosis [None]
  - Hypotension [None]
  - Loss of consciousness [None]
  - Tachycardia [None]

NARRATIVE: CASE EVENT DATE: 20110214
